FAERS Safety Report 8113417-9 (Version None)
Quarter: 2012Q1

REPORT INFORMATION
  Report Type: 
  Country: None (occurrence: None)
  Receive Date: 20120203
  Receipt Date: 20120131
  Transmission Date: 20120608
  Serious: Yes (Death)
  Sender: FDA-Public Use
  Company Number: PHEH2012US002896

PATIENT
  Age: 46 Year
  Sex: Male

DRUGS (1)
  1. FANAPT [Suspect]
     Dosage: 24 MG, BID

REACTIONS (3)
  - DEATH [None]
  - MALAISE [None]
  - OVERDOSE [None]
